FAERS Safety Report 13572158 (Version 1)
Quarter: 2017Q2

REPORT INFORMATION
  Report Type: Other
  Country: TR (occurrence: TR)
  Receive Date: 20170523
  Receipt Date: 20170523
  Transmission Date: 20170830
  Serious: Yes (Congenital Anomaly)
  Sender: FDA-Public Use
  Company Number: TR-ORCHID HEALTHCARE-2021100

PATIENT
  Age: 19 Month
  Sex: Male
  Weight: 11 kg

DRUGS (1)
  1. DIVALPROEX SODIUM. [Suspect]
     Active Substance: DIVALPROEX SODIUM
     Indication: EPILEPSY
     Route: 065

REACTIONS (2)
  - Foetal exposure during pregnancy [Unknown]
  - Foetal anticonvulsant syndrome [Unknown]
